FAERS Safety Report 7769582-6 (Version None)
Quarter: 2011Q3

REPORT INFORMATION
  Report Type: 
  Country: None (occurrence: None)
  Receive Date: 20110922
  Receipt Date: 20110413
  Transmission Date: 20111222
  Serious: No
  Sender: FDA-Public Use
  Company Number: US-ASTRAZENECA-2009SE33125

PATIENT
  Age: 438 Month
  Sex: Female
  Weight: 106.6 kg

DRUGS (5)
  1. SEROQUEL [Suspect]
     Route: 048
     Dates: start: 20040101, end: 20060101
  2. TRAZODONE HYDROCHLORIDE [Concomitant]
     Dates: end: 20040415
  3. PROZAC [Concomitant]
     Dates: start: 20040415
  4. SEROQUEL [Suspect]
     Indication: BIPOLAR I DISORDER
     Dosage: 25 MG ONE OR TWO BY MOUTH DAILY AT BEDTIME
     Route: 048
     Dates: start: 20040415
  5. DEPAKOTE [Concomitant]
     Dates: start: 20040415

REACTIONS (4)
  - TYPE 2 DIABETES MELLITUS [None]
  - BLOOD TRIGLYCERIDES INCREASED [None]
  - OBESITY [None]
  - WEIGHT INCREASED [None]
